FAERS Safety Report 21573219 (Version 4)
Quarter: 2022Q4

REPORT INFORMATION
  Report Type: Spontaneous
  Country: JP (occurrence: JP)
  Receive Date: 20221109
  Receipt Date: 20221215
  Transmission Date: 20230113
  Serious: Yes (Death, Hospitalization, Other)
  Sender: FDA-Public Use
  Company Number: JP-BRISTOL-MYERS SQUIBB COMPANY-2022-134965

PATIENT
  Age: 72 Year
  Sex: Male

DRUGS (2)
  1. VIDAZA [Suspect]
     Active Substance: AZACITIDINE
     Indication: Myelodysplastic syndrome
     Dosage: INJECTION 100MG, DAILY DOSE-1
     Dates: start: 2022, end: 2022
  2. VIDAZA [Suspect]
     Active Substance: AZACITIDINE
     Dosage: 100 MG INJECTION
     Route: 058
     Dates: end: 20221112

REACTIONS (2)
  - Cerebral infarction [Recovered/Resolved with Sequelae]
  - Cardiac failure acute [Fatal]

NARRATIVE: CASE EVENT DATE: 20221024
